FAERS Safety Report 6085652-5 (Version None)
Quarter: 2009Q1

REPORT INFORMATION
  Report Type: 
  Country: None (occurrence: None)
  Receive Date: 20090217
  Receipt Date: 20080103
  Transmission Date: 20090719
  Serious: Yes (Other)
  Sender: FDA-Public Use
  Company Number: MC200700718

PATIENT
  Age: 61 Year
  Sex: Male
  Weight: 94 kg

DRUGS (3)
  1. ANGIOMAX [Suspect]
     Indication: PERCUTANEOUS CORONARY INTERVENTION
     Dosage: 0.75 MG/KG, BOLUS, IV BOLUS ; 0.3 MG/KG, BOLUS, IV BOLUS; 1.75 MG/KG, HR IV
     Route: 040
     Dates: start: 20071129, end: 20071129
  2. . [Concomitant]
  3. INTEGRILIN [Suspect]
     Indication: PERCUTANEOUS CORONARY INTERVENTION
     Dosage: 8.5 ML, TWICE, INTRAVENOUS
     Route: 042
     Dates: start: 20071129, end: 20071129

REACTIONS (2)
  - CATHETER THROMBOSIS [None]
  - COAGULATION TIME ABNORMAL [None]
